FAERS Safety Report 8983424 (Version 4)
Quarter: 2013Q2

REPORT INFORMATION
  Report Type: Spontaneous
  Country: US (occurrence: US)
  Receive Date: 20121224
  Receipt Date: 20130523
  Transmission Date: 20140414
  Serious: Yes (Other)
  Sender: FDA-Public Use
  Company Number: US-BIOGENIDEC-2012BI060782

PATIENT
  Age: 56 Year
  Sex: Female

DRUGS (10)
  1. TYSABRI [Suspect]
     Indication: MULTIPLE SCLEROSIS
     Route: 042
     Dates: start: 20100519, end: 20121022
  2. ALENDRONATE [Concomitant]
     Route: 048
  3. BACLOFEN [Concomitant]
     Route: 048
  4. NYSTATIN POWDER [Concomitant]
  5. PAROXETINE [Concomitant]
     Route: 048
  6. POLYETHYLENE GLYCOL [Concomitant]
  7. PREDNISONE [Concomitant]
  8. SERTRALINE [Concomitant]
     Route: 048
  9. TIZANIDINE [Concomitant]
     Route: 048
  10. ZOLPIDEM [Concomitant]
     Route: 048

REACTIONS (3)
  - Convulsion [Unknown]
  - Neuromyelitis optica [Not Recovered/Not Resolved]
  - Vasculitis [Not Recovered/Not Resolved]
